FAERS Safety Report 15288890 (Version 1)
Quarter: 2018Q3

REPORT INFORMATION
  Report Type: Spontaneous
  Country: US (occurrence: US)
  Receive Date: 20180817
  Receipt Date: 20180817
  Transmission Date: 20181010
  Serious: Yes (Other)
  Sender: FDA-Public Use
  Company Number: US-BAYER-2018-151158

PATIENT
  Age: 23 Year
  Sex: Female

DRUGS (1)
  1. SKYLA [Suspect]
     Active Substance: LEVONORGESTREL
     Indication: CONTRACEPTION
     Dosage: 14 MCG/24HR, CONT
     Route: 015
     Dates: start: 201610, end: 201808

REACTIONS (7)
  - Pain [None]
  - Abortion spontaneous [None]
  - Abdominal distension [None]
  - Menstruation irregular [None]
  - Drug ineffective [None]
  - Pregnancy with contraceptive device [None]
  - Vaginal discharge [None]

NARRATIVE: CASE EVENT DATE: 2018
